FAERS Safety Report 6379317-X (Version None)
Quarter: 2009Q3

REPORT INFORMATION
  Report Type: 
  Country: None (occurrence: None)
  Receive Date: 20090923
  Receipt Date: 20090923
  Transmission Date: 20100115
  Serious: Yes (Hospitalization)
  Sender: FDA-Public Use
  Company Number: None

PATIENT
  Age: 34 Year
  Sex: Male

DRUGS (3)
  1. CEFTRIAXONE [Suspect]
     Indication: MASTOIDITIS
     Dosage: 2GM IV Q 12 ?
     Dates: start: 20090401, end: 20090509
  2. DOCUSATE [Concomitant]
  3. HYDROMORPHONE [Concomitant]

REACTIONS (3)
  - HEADACHE [None]
  - PYREXIA [None]
  - RASH [None]
